FAERS Safety Report 17387142 (Version 1)
Quarter: 2020Q1

REPORT INFORMATION
  Report Type: Spontaneous
  Country: PL (occurrence: PL)
  Receive Date: 20200206
  Receipt Date: 20200206
  Transmission Date: 20200409
  Serious: Yes (Other)
  Sender: FDA-Public Use
  Company Number: PL-PRINSTON PHARMACEUTICAL INC.-2020PRN00040

PATIENT
  Age: 65 Year
  Sex: Female

DRUGS (2)
  1. CLOPIDOGREL [Suspect]
     Active Substance: CLOPIDOGREL BISULFATE
     Route: 065
  2. BUPROPION. [Suspect]
     Active Substance: BUPROPION
     Route: 065

REACTIONS (3)
  - Tremor [Unknown]
  - Seizure [Unknown]
  - Drug interaction [Unknown]
